FAERS Safety Report 5046554-6 (Version None)
Quarter: 2006Q3

REPORT INFORMATION
  Report Type: 
  Country: None (occurrence: None)
  Receive Date: 20060705
  Receipt Date: 20060705
  Transmission Date: 20061208
  Serious: No
  Sender: FDA-Public Use
  Company Number: None

PATIENT
  Age: 35 Year
  Sex: Female

DRUGS (2)
  1. TUBERSOL [Suspect]
     Dosage: 5 US UNITS (0.1ML) X 1 INTRADERMALLY
     Route: 023
     Dates: start: 20060509
  2. TUBERSOL [Suspect]
     Dosage: 5 US UNITS (0.1 ML) X 1 INTRADERMALLY
     Route: 023

REACTIONS (2)
  - INJECTION SITE ABSCESS [None]
  - PAIN [None]
